FAERS Safety Report 5243688-8 (Version None)
Quarter: 2007Q1

REPORT INFORMATION
  Report Type: 
  Country: None (occurrence: None)
  Receive Date: 20070220
  Receipt Date: 20070220
  Transmission Date: 20070707
  Serious: Yes (Other)
  Sender: FDA-Public Use
  Company Number: None

PATIENT
  Age: 26 Year
  Sex: Female
  Weight: 77.1115 kg

DRUGS (2)
  1. ZOLOFT [Suspect]
     Indication: DEPRESSION
     Dosage: 100 MG DAILY PO
     Route: 048
     Dates: start: 20040601, end: 20060101
  2. ORTHO TRI-CYCLEN [Concomitant]

REACTIONS (5)
  - ADVERSE EVENT [None]
  - ANORGASMIA [None]
  - ANXIETY [None]
  - DRUG DOSE OMISSION [None]
  - LIBIDO DECREASED [None]
